FAERS Safety Report 5564900-1 (Version None)
Quarter: 2007Q4

REPORT INFORMATION
  Report Type: 
  Country: None (occurrence: None)
  Receive Date: 20071214
  Receipt Date: 20071214
  Transmission Date: 20080405
  Serious: No
  Sender: FDA-Public Use
  Company Number: None

PATIENT
  Age: 55 Year
  Sex: Male
  Weight: 65.7716 kg

DRUGS (1)
  1. PROSCAR [Suspect]
     Dosage: 5 MG 1 TAB PO
     Route: 048
     Dates: start: 20070811, end: 20071211

REACTIONS (3)
  - EJACULATION FAILURE [None]
  - ERECTILE DYSFUNCTION [None]
  - LIBIDO DECREASED [None]
